FAERS Safety Report 7582423-5 (Version None)
Quarter: 2011Q2

REPORT INFORMATION
  Report Type: 
  Country: None (occurrence: None)
  Receive Date: 20110630
  Receipt Date: 20110531
  Transmission Date: 20111010
  Serious: Yes (Hospitalization)
  Sender: FDA-Public Use
  Company Number: AT-ELI_LILLY_AND_COMPANY-AT201106005854

PATIENT
  Sex: Male

DRUGS (5)
  1. STRATTERA [Suspect]
     Dosage: UNK
  2. NOZINAN [Concomitant]
     Dosage: 20 GTT, TID
  3. STRATTERA [Suspect]
     Dosage: UNK
  4. STRATTERA [Suspect]
     Indication: ATTENTION DEFICIT/HYPERACTIVITY DISORDER
     Dosage: 40 MG, QD
  5. ZIPRASIDONE HYDROCHLORIDE [Concomitant]
     Dosage: 40 MG, BID

REACTIONS (2)
  - CONDITION AGGRAVATED [None]
  - DRUG LEVEL INCREASED [None]
